FAERS Safety Report 7572430-0 (Version None)
Quarter: 2011Q2

REPORT INFORMATION
  Report Type: 
  Country: None (occurrence: None)
  Receive Date: 20110624
  Receipt Date: 20110620
  Transmission Date: 20111010
  Serious: Yes (Hospitalization, Congenital Anomaly)
  Sender: FDA-Public Use
  Company Number: FR-ABBOTT-11P-056-0732480-00

PATIENT
  Sex: Male

DRUGS (2)
  1. HUMIRA [Suspect]
     Indication: DRUG EXPOSURE DURING PREGNANCY
     Route: 050
  2. HUMIRA [Suspect]

REACTIONS (4)
  - DUODENAL ATRESIA [None]
  - PATERNAL DRUGS AFFECTING FOETUS [None]
  - KLINEFELTER'S SYNDROME [None]
  - DRUG EXPOSURE DURING PREGNANCY [None]
